FAERS Safety Report 10223064 (Version 13)
Quarter: 2016Q4

REPORT INFORMATION
  Report Type: Report from Study
  Country: BR (occurrence: BR)
  Receive Date: 20140607
  Receipt Date: 20161215
  Transmission Date: 20170206
  Serious: Yes (Other)
  Sender: FDA-Public Use
  Company Number: PHHY2014BR066857

PATIENT
  Age: 52 Year
  Sex: Female
  Weight: 47 kg

DRUGS (9)
  1. EXJADE [Suspect]
     Active Substance: DEFERASIROX
     Indication: SICKLE CELL ANAEMIA
     Dosage: 15 MG/KG (3 DF OF 225 MG) QHS
     Route: 048
  2. HYDREA [Concomitant]
     Active Substance: HYDROXYUREA
     Indication: PRODUCT USED FOR UNKNOWN INDICATION
     Route: 065
  3. FOLIC ACID. [Concomitant]
     Active Substance: FOLIC ACID
     Indication: ANAEMIA
     Dosage: 1 DF, QD
     Route: 048
  4. VITAMIN B COMPLEX NOS [Concomitant]
     Active Substance: CYANOCOBALAMIN\PYRIDOXINE HYDROCHLORIDE\RIBOFLAVIN\SODIUM PANTOTHENATE\THIAMINE HYDROCHLORIDE\VITAMIN B COMPLEX
     Indication: ANAEMIA
     Dosage: 1 DF, QD
     Route: 048
  5. SOFOSBUVIR [Concomitant]
     Active Substance: SOFOSBUVIR
     Indication: HEPATITIS C
     Dosage: 2 TABLET AT NIGHT
     Route: 048
     Dates: end: 201609
  6. DESFERAL [Concomitant]
     Active Substance: DEFEROXAMINE MESYLATE
     Indication: IRON OVERLOAD
     Dosage: UNK
     Route: 065
  7. INTERFERON [Concomitant]
     Active Substance: INTERFERON
     Indication: HEPATITIS C
     Dosage: 1 DF, QW
     Route: 065
  8. EXJADE [Suspect]
     Active Substance: DEFERASIROX
     Dosage: 20 MG/KG (2 DF OF 500MG), QHS (1000 MG, QD)
     Route: 048
  9. VITAMIN B COMPLEX NOS [Concomitant]
     Active Substance: CYANOCOBALAMIN\PYRIDOXINE HYDROCHLORIDE\RIBOFLAVIN\SODIUM PANTOTHENATE\THIAMINE HYDROCHLORIDE\VITAMIN B COMPLEX
     Indication: LIVER DISORDER

REACTIONS (34)
  - Compulsions [Recovered/Resolved]
  - Headache [Recovered/Resolved]
  - Pyrexia [Recovering/Resolving]
  - Retching [Recovered/Resolved]
  - Skin ulcer [Recovering/Resolving]
  - Weight decreased [Recovered/Resolved]
  - Dyspepsia [Not Recovered/Not Resolved]
  - Hyperthyroidism [Recovering/Resolving]
  - Throat irritation [Not Recovered/Not Resolved]
  - Irritability [Recovering/Resolving]
  - Insomnia [Recovered/Resolved]
  - Hepatomegaly [Recovering/Resolving]
  - Hepatic enzyme increased [Unknown]
  - Pain in extremity [Recovered/Resolved]
  - Arthralgia [Unknown]
  - Blood iron increased [Unknown]
  - Cardiac murmur [Not Recovered/Not Resolved]
  - Malaise [Recovered/Resolved]
  - Scar pain [Recovering/Resolving]
  - Weight decreased [Unknown]
  - Dizziness [Recovered/Resolved]
  - Hepatic pain [Recovered/Resolved]
  - Haemoglobin decreased [Unknown]
  - Osteoporosis [Unknown]
  - Renal disorder [Unknown]
  - Immunoglobulins decreased [Recovered/Resolved]
  - Hepatic steatosis [Unknown]
  - Fatigue [Recovering/Resolving]
  - Liver disorder [Recovering/Resolving]
  - Hepatic pain [Recovered/Resolved]
  - Sickle cell anaemia with crisis [Recovered/Resolved]
  - Eating disorder [Recovered/Resolved]
  - Dysgeusia [Not Recovered/Not Resolved]
  - Malaise [Recovering/Resolving]

NARRATIVE: CASE EVENT DATE: 20160119
